FAERS Safety Report 8989862 (Version 5)
Quarter: 2013Q3

REPORT INFORMATION
  Report Type: Spontaneous
  Country: FR (occurrence: FR)
  Receive Date: 20121228
  Receipt Date: 20130715
  Transmission Date: 20140515
  Serious: Yes (Other)
  Sender: FDA-Public Use
  Company Number: FR-JNJFOC-20121102301

PATIENT
  Sex: Female

DRUGS (8)
  1. RISPERDAL CONSTA LP [Suspect]
     Indication: PRODUCT USED FOR UNKNOWN INDICATION
     Route: 030
  2. RISPERDAL [Suspect]
     Indication: PRODUCT USED FOR UNKNOWN INDICATION
     Route: 048
  3. HALDOL DECANOAS [Suspect]
     Indication: PRODUCT USED FOR UNKNOWN INDICATION
     Route: 065
  4. ZYPREXA [Suspect]
     Indication: PRODUCT USED FOR UNKNOWN INDICATION
     Route: 065
  5. TRANXENE [Concomitant]
     Indication: ANXIETY
     Route: 065
  6. RIVOTRIL [Concomitant]
     Route: 065
  7. TEMESTA [Concomitant]
     Route: 065
  8. DEPAMIDE [Concomitant]
     Route: 065

REACTIONS (6)
  - Weight increased [Unknown]
  - Fatigue [Unknown]
  - Hallucination [Unknown]
  - Chromaturia [Unknown]
  - Drug ineffective [Unknown]
  - Depression [Unknown]
